FAERS Safety Report 4387232-6 (Version None)
Quarter: 2004Q2

REPORT INFORMATION
  Report Type: 
  Country: None (occurrence: None)
  Receive Date: 20040630
  Receipt Date: 20040329
  Transmission Date: 20050107
  Serious: No
  Sender: FDA-Public Use
  Company Number: US-GLAXOSMITHKLINE-A0504858A

PATIENT
  Sex: Female

DRUGS (2)
  1. ADVAIR HFA [Suspect]
     Indication: ASTHMA
     Route: 055
  2. SINGULAIR [Suspect]
     Indication: ASTHMA
     Route: 065

REACTIONS (3)
  - DEHYDRATION [None]
  - FEELING HOT [None]
  - FLUSHING [None]
